FAERS Safety Report 16118114 (Version 2)
Quarter: 2019Q2

REPORT INFORMATION
  Report Type: Spontaneous
  Country: US (occurrence: US)
  Receive Date: 20190326
  Receipt Date: 20190403
  Transmission Date: 20190711
  Serious: Yes (Other)
  Sender: FDA-Public Use
  Company Number: US-009507513-1903USA009015

PATIENT
  Age: 24 Year
  Sex: Female
  Weight: 65.31 kg

DRUGS (1)
  1. NEXPLANON [Suspect]
     Active Substance: ETONOGESTREL
     Dosage: 1 IMPLANT
     Route: 059
     Dates: start: 20181002

REACTIONS (7)
  - Hypoaesthesia [Unknown]
  - Device dislocation [Not Recovered/Not Resolved]
  - Circumstance or information capable of leading to medication error [Unknown]
  - Vaginal haemorrhage [Unknown]
  - Discomfort [Unknown]
  - Influenza [Unknown]
  - Device use issue [Unknown]

NARRATIVE: CASE EVENT DATE: 20190107
